FAERS Safety Report 12520013 (Version 1)
Quarter: 2016Q2

REPORT INFORMATION
  Report Type: Spontaneous
  Country: US (occurrence: US)
  Receive Date: 20160630
  Receipt Date: 20160630
  Transmission Date: 20160815
  Serious: No
  Sender: FDA-Public Use
  Company Number: US-PFIZER INC-2016292993

PATIENT
  Age: 65 Year
  Sex: Female

DRUGS (16)
  1. HYDROXYCHLOROQUINE [Suspect]
     Active Substance: HYDROXYCHLOROQUINE
     Dosage: UNK
  2. PLAQUENIL [Suspect]
     Active Substance: HYDROXYCHLOROQUINE SULFATE
  3. ETODOLAC. [Suspect]
     Active Substance: ETODOLAC
     Dosage: UNK
  4. ZITHROMAX [Suspect]
     Active Substance: AZITHROMYCIN DIHYDRATE
  5. IMURAN [Suspect]
     Active Substance: AZATHIOPRINE
  6. LACTOSE [Suspect]
     Active Substance: LACTOSE
  7. SELDANE [Suspect]
     Active Substance: TERFENADINE
  8. TERFENADINE [Suspect]
     Active Substance: TERFENADINE
  9. AZATHIOPRINE. [Suspect]
     Active Substance: AZATHIOPRINE
  10. AZITHROMYCIN ANHYDROUS. [Suspect]
     Active Substance: AZITHROMYCIN ANHYDROUS
     Dosage: UNK
  11. NABUMETONE. [Suspect]
     Active Substance: NABUMETONE
  12. METHOTREXATE SODIUM. [Suspect]
     Active Substance: METHOTREXATE SODIUM
     Dosage: UNK
  13. NAPROXEN. [Suspect]
     Active Substance: NAPROXEN
     Dosage: UNK
  14. IODINE. [Suspect]
     Active Substance: IODINE
     Dosage: UNK
  15. SULINDAC. [Suspect]
     Active Substance: SULINDAC
  16. CLINORIL [Suspect]
     Active Substance: SULINDAC

REACTIONS (1)
  - Drug hypersensitivity [Unknown]
